FAERS Safety Report 12535716 (Version 1)
Quarter: 2016Q3

REPORT INFORMATION
  Report Type: Spontaneous
  Country: US (occurrence: None)
  Receive Date: 20160706
  Receipt Date: 20160706
  Transmission Date: 20161109
  Serious: No
  Sender: FDA-Public Use
  Company Number: None

PATIENT
  Age: 62 Year
  Sex: Female

DRUGS (9)
  1. CLOBETASOL [Concomitant]
     Active Substance: CLOBETASOL
  2. ECZEMA/PSORIASIS [Concomitant]
  3. ARTHRITIS [Concomitant]
     Active Substance: TROLAMINE SALICYLATE
  4. TRIAMCINOLONE [Concomitant]
     Active Substance: TRIAMCINOLONE
  5. BREAST CANCER [Concomitant]
  6. LIDOCAINE. [Concomitant]
     Active Substance: LIDOCAINE
  7. IBRANCE [Suspect]
     Active Substance: PALBOCICLIB
     Dosage: 125MG QDX21D PO
     Route: 048
  8. MORPHINE [Concomitant]
     Active Substance: MORPHINE
  9. LAMISIL [Concomitant]
     Active Substance: TERBINAFINE HYDROCHLORIDE

REACTIONS (1)
  - Pain in extremity [None]

NARRATIVE: CASE EVENT DATE: 20160630
